FAERS Safety Report 16104583 (Version 3)
Quarter: 2020Q1

REPORT INFORMATION
  Report Type: Spontaneous
  Country: US (occurrence: US)
  Receive Date: 20190322
  Receipt Date: 20200225
  Transmission Date: 20200409
  Serious: Yes (Other)
  Sender: FDA-Public Use
  Company Number: US-BAYER-2019-056938

PATIENT
  Age: 22 Year
  Sex: Female
  Weight: 132.34 kg

DRUGS (6)
  1. AMOXICILLIN. [Concomitant]
     Active Substance: AMOXICILLIN
     Dosage: UNK
     Route: 048
  2. PRENATAL PLUS IRON [Concomitant]
     Active Substance: .ALPHA.-TOCOPHEROL ACETATE, DL-\.BETA.-CAROTENE\ASCORBIC ACID\CALCIUM CARBONATE\CHOLECALCIFEROL\CUPRIC OXIDE\CYANOCOBALAMIN\FERROUS FUMARATE\FOLIC ACID\NIACINAMIDE\PYRIDOXINE HYDROCHLORIDE\RIBOFLAVIN\THIAMINE MONONITRATE\VITAMIN A ACETATE\ZINC OXIDE
  3. SKYLA [Suspect]
     Active Substance: LEVONORGESTREL
     Indication: CONTRACEPTION
     Dosage: 14 MCG/24HR, CONT
     Route: 015
     Dates: start: 20171205, end: 20190307
  4. PROAIR HFA [Concomitant]
     Active Substance: ALBUTEROL SULFATE
     Route: 045
  5. ZITHROMAX [Concomitant]
     Active Substance: AZITHROMYCIN DIHYDRATE
     Route: 048
  6. ALBUTEROL SULFATE. [Concomitant]
     Active Substance: ALBUTEROL SULFATE

REACTIONS (20)
  - Device dislocation [Recovered/Resolved]
  - Serum ferritin decreased [None]
  - Hyperphagia [None]
  - Polydipsia [None]
  - Drug ineffective [None]
  - Pregnancy with contraceptive device [Recovered/Resolved]
  - Temperature intolerance [None]
  - Polyuria [None]
  - Bronchitis [None]
  - Body tinea [Recovered/Resolved]
  - Uterine leiomyoma [None]
  - Dyspareunia [None]
  - Bronchospasm [None]
  - Weight fluctuation [None]
  - Genital haemorrhage [None]
  - Cyst [None]
  - Viral infection [None]
  - Hot flush [None]
  - Night sweats [None]
  - Vulvovaginal dryness [None]

NARRATIVE: CASE EVENT DATE: 20171205
